FAERS Safety Report 14432339 (Version 2)
Quarter: 2018Q1

REPORT INFORMATION
  Report Type: Spontaneous
  Country: FR (occurrence: FR)
  Receive Date: 20180124
  Receipt Date: 20180212
  Transmission Date: 20180509
  Serious: Yes (Congenital Anomaly, Other)
  Sender: FDA-Public Use
  Company Number: FR-PFIZER INC-2018025310

PATIENT
  Sex: Male
  Weight: 2 kg

DRUGS (5)
  1. ZOLOFT [Suspect]
     Active Substance: SERTRALINE HYDROCHLORIDE
     Indication: DEPRESSION
     Dosage: 50 MG, 1X/DAY
     Route: 064
     Dates: start: 20160725
  2. ZOLOFT [Suspect]
     Active Substance: SERTRALINE HYDROCHLORIDE
     Dosage: 100 MG, 1X/DAY: 50 MG, 1X/DAY
     Route: 064
     Dates: end: 20170403
  3. NICOPATCH [Suspect]
     Active Substance: NICOTINE
     Indication: NICOTINE DEPENDENCE
     Dosage: 14 MG, 1X/DAY
     Route: 064
     Dates: start: 20160725
  4. HOMEOPATHICS NOS [Suspect]
     Active Substance: HOMEOPATHICS
     Indication: SLEEP DISORDER
     Dosage: UNK
     Route: 064
     Dates: start: 20160725, end: 20170403
  5. NICOPATCH [Suspect]
     Active Substance: NICOTINE
     Dosage: 7 MG, 1X/DAY
     Route: 064
     Dates: end: 20170403

REACTIONS (3)
  - Foetal growth restriction [Not Recovered/Not Resolved]
  - Maternal exposure during pregnancy [Not Recovered/Not Resolved]
  - Talipes [Recovering/Resolving]

NARRATIVE: CASE EVENT DATE: 20160725
